FAERS Safety Report 4632662-8 (Version None)
Quarter: 2005Q1

REPORT INFORMATION
  Report Type: 
  Country: None (occurrence: None)
  Receive Date: 20050331
  Receipt Date: 20041020
  Transmission Date: 20050727
  Serious: Yes (Hospitalization)
  Sender: FDA-Public Use
  Company Number: 200415106BCC

PATIENT
  Age: 74 Year
  Sex: Female
  Weight: 136.0791 kg

DRUGS (1)
  1. ALEVE [Suspect]
     Indication: BACK PAIN
     Dosage: 220 MG, IRR, ORAL  A FEW WEEKS
     Route: 048

REACTIONS (3)
  - CONSTIPATION [None]
  - FAECES DISCOLOURED [None]
  - HAEMATOCHEZIA [None]
